FAERS Safety Report 7811823-0 (Version None)
Quarter: 2011Q4

REPORT INFORMATION
  Report Type: 
  Country: None (occurrence: None)
  Receive Date: 20111013
  Receipt Date: 20111011
  Transmission Date: 20120403
  Serious: Yes (Other)
  Sender: FDA-Public Use
  Company Number: DE-EISAI INC-E2090-01792-SPO-DE

PATIENT
  Age: 75 Year
  Sex: Male

DRUGS (1)
  1. ZONEGRAN [Suspect]
     Dosage: UNKNOWN
     Route: 048

REACTIONS (1)
  - SKIN REACTION [None]
